FAERS Safety Report 16379385 (Version 1)
Quarter: 2019Q2

REPORT INFORMATION
  Report Type: Spontaneous
  Country: FR (occurrence: FR)
  Receive Date: 20190531
  Receipt Date: 20190531
  Transmission Date: 20190711
  Serious: Yes (Other)
  Sender: FDA-Public Use
  Company Number: FR-009507513-1905FRA010570

PATIENT
  Age: 70 Year
  Sex: Female

DRUGS (3)
  1. CELESTENE [BETAMETHASONE] [Suspect]
     Active Substance: BETAMETHASONE
     Indication: ASTHMATIC CRISIS
     Dosage: UNK
     Route: 048
     Dates: start: 2009, end: 201904
  2. CELESTENE [BETAMETHASONE] [Suspect]
     Active Substance: BETAMETHASONE
     Indication: DECREASED APPETITE
  3. CELESTENE [BETAMETHASONE] [Suspect]
     Active Substance: BETAMETHASONE
     Indication: ASTHENIA

REACTIONS (7)
  - Cardiac disorder [Unknown]
  - Asthmatic crisis [Recovered/Resolved]
  - Insomnia [Unknown]
  - Stress [Recovered/Resolved]
  - Depression [Unknown]
  - Weight decreased [Unknown]
  - Therapeutic response unexpected [Unknown]

NARRATIVE: CASE EVENT DATE: 201808
